FAERS Safety Report 21939339 (Version 1)
Quarter: 2023Q1

REPORT INFORMATION
  Report Type: Report from Study
  Country: US (occurrence: US)
  Receive Date: 20230201
  Receipt Date: 20230201
  Transmission Date: 20230418
  Serious: No
  Sender: FDA-Public Use
  Company Number: US-EXELIXIS-CABO-21046746

PATIENT
  Age: 47 Year
  Sex: Male

DRUGS (1)
  1. CABOMETYX [Suspect]
     Active Substance: CABOZANTINIB S-MALATE
     Indication: Product used for unknown indication
     Dosage: 60 MG, QD
     Route: 048
     Dates: start: 20211115

REACTIONS (9)
  - Tongue discomfort [Unknown]
  - Groin pain [Unknown]
  - Pruritus [Unknown]
  - Fatigue [Unknown]
  - Nausea [Recovered/Resolved]
  - Blood pressure increased [Unknown]
  - Dry mouth [Unknown]
  - Diarrhoea [Unknown]
  - Dry skin [Unknown]

NARRATIVE: CASE EVENT DATE: 20211122
